FAERS Safety Report 19062057 (Version 1)
Quarter: 2021Q1

REPORT INFORMATION
  Report Type: Spontaneous
  Country: US (occurrence: US)
  Receive Date: 20210326
  Receipt Date: 20210326
  Transmission Date: 20210420
  Serious: Yes (Other)
  Sender: FDA-Public Use
  Company Number: US-PURACAP-2020EPC00399

PATIENT
  Age: 45 Year
  Sex: Male
  Weight: 61.2 kg

DRUGS (1)
  1. ERGOCALCIFEROL. [Suspect]
     Active Substance: ERGOCALCIFEROL
     Indication: VITAMIN D DEFICIENCY
     Dosage: 50000 U, 1X/WEEK
     Route: 048

REACTIONS (1)
  - Hypercalcaemia [Recovered/Resolved]
